FAERS Safety Report 18036555 (Version 1)
Quarter: 2020Q3

REPORT INFORMATION
  Report Type: Spontaneous
  Country: CA (occurrence: CA)
  Receive Date: 20200717
  Receipt Date: 20200717
  Transmission Date: 20201103
  Serious: Yes (Hospitalization)
  Sender: FDA-Public Use
  Company Number: CA-ACCORD-190717

PATIENT
  Age: 17 Year
  Sex: Male

DRUGS (4)
  1. DOPAMET [Concomitant]
  2. BENADRYL [Suspect]
     Active Substance: DIPHENHYDRAMINE HYDROCHLORIDE
  3. MIDAZOLAM. [Concomitant]
     Active Substance: MIDAZOLAM
  4. TOPIRAMATE. [Suspect]
     Active Substance: TOPIRAMATE

REACTIONS (7)
  - Electrocardiogram QT prolonged [Recovered/Resolved]
  - Intentional overdose [Unknown]
  - Seizure [Recovered/Resolved]
  - Acidosis [Recovered/Resolved]
  - Somnolence [Recovered/Resolved]
  - Syncope [Recovered/Resolved]
  - Generalised tonic-clonic seizure [Recovered/Resolved]
